FAERS Safety Report 14586154 (Version 5)
Quarter: 2018Q3

REPORT INFORMATION
  Report Type: Report from Study
  Country: JP (occurrence: JP)
  Receive Date: 20180301
  Receipt Date: 20180830
  Transmission Date: 20181010
  Serious: Yes (Hospitalization, Other)
  Sender: FDA-Public Use
  Company Number: PHJP2018JP004605

PATIENT
  Age: 48 Year
  Sex: Male
  Weight: 56 kg

DRUGS (5)
  1. LIPITOR [Concomitant]
     Active Substance: ATORVASTATIN CALCIUM
     Indication: PROPHYLAXIS
     Dosage: UNK
     Route: 065
  2. VOTRIENT [Suspect]
     Active Substance: PAZOPANIB HYDROCHLORIDE
     Dosage: 600 MG, QD
     Route: 048
     Dates: start: 20170318, end: 20170406
  3. FOLIAMIN [Concomitant]
     Active Substance: FOLIC ACID
     Indication: PROPHYLAXIS
     Dosage: UNK
     Route: 065
  4. VOTRIENT [Suspect]
     Active Substance: PAZOPANIB HYDROCHLORIDE
     Indication: RENAL CELL CARCINOMA STAGE IV
     Dosage: 600 MG, QD
     Route: 048
     Dates: start: 20160229, end: 20161206
  5. DOMPERIDONE [Concomitant]
     Active Substance: DOMPERIDONE
     Indication: RENAL CELL CARCINOMA STAGE IV
     Dosage: UNK
     Route: 065

REACTIONS (6)
  - Palmar-plantar erythrodysaesthesia syndrome [Recovering/Resolving]
  - Skin ulcer [Not Recovered/Not Resolved]
  - Cerebral infarction [Recovering/Resolving]
  - Nausea [Recovered/Resolved]
  - Gastritis [Recovered/Resolved]
  - Hypothyroidism [Recovering/Resolving]

NARRATIVE: CASE EVENT DATE: 20160307
